FAERS Safety Report 24009051 (Version 1)
Quarter: 2024Q2

REPORT INFORMATION
  Report Type: Spontaneous
  Country: US (occurrence: US)
  Receive Date: 20240625
  Receipt Date: 20240625
  Transmission Date: 20240715
  Serious: No
  Sender: FDA-Public Use
  Company Number: US-BANNER LIFE SCIENCES, LLC-2023BAN000212

PATIENT

DRUGS (2)
  1. BAFIERTAM [Suspect]
     Active Substance: MONOMETHYL FUMARATE
     Indication: Multiple sclerosis
     Dosage: 95 MILLIGRAM, BID  FOR 7 DAYS THEN 2 CAPSULES (190MG) BY MOUTH 2 TIMES A DAY
     Route: 048
     Dates: start: 202307
  2. AMPYRA [Concomitant]
     Active Substance: DALFAMPRIDINE
     Indication: Product used for unknown indication
     Dosage: UNK
     Dates: end: 2023

REACTIONS (5)
  - Asthenia [Unknown]
  - Depressed mood [Unknown]
  - Yellow skin [Unknown]
  - Ocular icterus [Unknown]
  - Chromaturia [Unknown]

NARRATIVE: CASE EVENT DATE: 20230101
